FAERS Safety Report 7940419-5 (Version None)
Quarter: 2011Q4

REPORT INFORMATION
  Report Type: 
  Country: None (occurrence: None)
  Receive Date: 20111127
  Receipt Date: 20111123
  Transmission Date: 20120403
  Serious: Yes (Hospitalization)
  Sender: FDA-Public Use
  Company Number: IT-SANOFI-AVENTIS-2011SA076883

PATIENT
  Age: 82 Year
  Sex: Female

DRUGS (8)
  1. LUVION [Concomitant]
  2. ASPIRIN [Concomitant]
  3. RAMIPRIL [Concomitant]
  4. NITRODERM [Concomitant]
  5. LANSOPRAZOLE [Concomitant]
  6. SIMVASTATIN [Concomitant]
  7. LASIX [Suspect]
     Route: 048
     Dates: start: 20110103, end: 20110416
  8. PLAVIX [Concomitant]

REACTIONS (2)
  - CARDIAC FAILURE [None]
  - URINE OUTPUT DECREASED [None]
